FAERS Safety Report 6393795-1 (Version None)
Quarter: 2009Q4

REPORT INFORMATION
  Report Type: 
  Country: None (occurrence: None)
  Receive Date: 20091008
  Receipt Date: 20091005
  Transmission Date: 20100525
  Serious: Yes (Hospitalization)
  Sender: FDA-Public Use
  Company Number: US-ELI_LILLY_AND_COMPANY-US200910000945

PATIENT
  Sex: Female

DRUGS (3)
  1. GEMZAR [Suspect]
     Indication: PANCREATIC CARCINOMA
     Dosage: 1000 MG/M2, OTHER
     Dates: start: 20090928
  2. DECADRON [Concomitant]
  3. ALOXI [Concomitant]

REACTIONS (4)
  - CHILLS [None]
  - HYPOTENSION [None]
  - TACHYCARDIA [None]
  - VOMITING [None]
